FAERS Safety Report 24765912 (Version 1)
Quarter: 2024Q4

REPORT INFORMATION
  Report Type: Spontaneous
  Country: TR (occurrence: TR)
  Receive Date: 20241223
  Receipt Date: 20241223
  Transmission Date: 20250114
  Serious: Yes (Other)
  Sender: MYLAN
  Company Number: TR-MYLANLABS-2024M1113797

PATIENT
  Age: 37 Year
  Sex: Female

DRUGS (9)
  1. LYRICA [Suspect]
     Active Substance: PREGABALIN
     Indication: Pain
     Dosage: 75 MILLIGRAM, BID
     Route: 065
  2. LYRICA [Suspect]
     Active Substance: PREGABALIN
     Indication: Lumbar hernia
  3. LYRICA [Suspect]
     Active Substance: PREGABALIN
     Indication: Pain
     Dosage: 300 MILLIGRAM, QD
     Route: 065
  4. LYRICA [Suspect]
     Active Substance: PREGABALIN
     Indication: Lumbar hernia
     Dosage: 2400 MILLIGRAM, QD
     Route: 065
  5. LUSTRAL [Suspect]
     Active Substance: SERTRALINE HYDROCHLORIDE
     Indication: Depression
     Dosage: 50 MILLIGRAM, QD
     Route: 065
  6. LUSTRAL [Suspect]
     Active Substance: SERTRALINE HYDROCHLORIDE
     Indication: Fatigue
  7. LUSTRAL [Suspect]
     Active Substance: SERTRALINE HYDROCHLORIDE
     Indication: Decreased activity
  8. LUSTRAL [Suspect]
     Active Substance: SERTRALINE HYDROCHLORIDE
     Indication: Disturbance in attention
  9. LUSTRAL [Suspect]
     Active Substance: SERTRALINE HYDROCHLORIDE
     Indication: Feelings of worthlessness

REACTIONS (8)
  - Sedation [Recovering/Resolving]
  - Drug abuse [Unknown]
  - Impulsive behaviour [Unknown]
  - Increased appetite [Unknown]
  - Euphoric mood [Unknown]
  - Fatigue [Unknown]
  - Insomnia [Unknown]
  - Withdrawal syndrome [Unknown]
